FAERS Safety Report 8963957 (Version 1)
Quarter: 2012Q4

REPORT INFORMATION
  Report Type: 
  Country: US (occurrence: US)
  Receive Date: 20121213
  Receipt Date: 20121213
  Transmission Date: 20130627
  Serious: Yes (Other)
  Sender: FDA-Public Use
  Company Number: PHEH2012US024369

PATIENT
  Sex: Female

DRUGS (5)
  1. EXELON PATCH [Suspect]
     Indication: VASCULAR DEMENTIA
     Dosage: 4.6 mg, BID
     Route: 062
  2. BYSTOLIC [Concomitant]
     Dosage: UNK UKN, UNK
  3. NORVASC [Concomitant]
     Dosage: UNK UKN, UNK
  4. LISINOPRIL [Concomitant]
     Dosage: UNK UKN, UNK
  5. WARFARIN [Concomitant]
     Dosage: UNK UKN, UNK

REACTIONS (6)
  - Road traffic accident [Unknown]
  - Laryngitis [Unknown]
  - Head injury [Unknown]
  - Incorrect dose administered [Unknown]
  - Fall [Unknown]
  - Hypersensitivity [Unknown]
